FAERS Safety Report 6525092 (Version 2)
Quarter: 2018Q3

REPORT INFORMATION
  Report Type: Spontaneous
  Country: FR (occurrence: FR)
  Receive Date: 20080111
  Receipt Date: 20180727
  Transmission Date: 20181010
  Serious: Yes (Hospitalization, Other)
  Sender: FDA-Public Use
  Company Number: FR-PFIZER INC-2008001988

PATIENT
  Age: 69 Year
  Sex: Male
  Weight: 76 kg

DRUGS (4)
  1. KENZEN [Concomitant]
     Active Substance: CANDESARTAN
  2. KARDEGIC [Concomitant]
     Active Substance: ASPIRIN DL-LYSINE
  3. CRESTOR [Suspect]
     Active Substance: ROSUVASTATIN CALCIUM
     Indication: DYSLIPIDAEMIA
     Dosage: UNK
     Route: 048
     Dates: start: 20070201, end: 20070215
  4. TAHOR [Suspect]
     Active Substance: ATORVASTATIN CALCIUM
     Indication: DYSLIPIDAEMIA
     Dosage: 10 MG, 1X/DAY
     Route: 048
     Dates: start: 20070216, end: 20070821

REACTIONS (2)
  - Cutaneous lupus erythematosus [Not Recovered/Not Resolved]
  - Lupus-like syndrome [Not Recovered/Not Resolved]

NARRATIVE: CASE EVENT DATE: 200702
